FAERS Safety Report 7796665-7 (Version None)
Quarter: 2011Q4

REPORT INFORMATION
  Report Type: 
  Country: None (occurrence: None)
  Receive Date: 20111005
  Receipt Date: 20110923
  Transmission Date: 20120403
  Serious: Yes (Other)
  Sender: FDA-Public Use
  Company Number: US-BAYER-2011-061197

PATIENT
  Age: 30 Year
  Sex: Female
  Weight: 68 kg

DRUGS (5)
  1. BENEFIBER [Concomitant]
     Dosage: UNK UNK, TID
     Route: 048
  2. YAZ [Suspect]
     Indication: PREMENSTRUAL SYNDROME
     Dosage: UNK
     Dates: start: 20081001, end: 20090901
  3. ACIPHEX [Concomitant]
     Dosage: 20 MG, QD
     Route: 048
  4. BISMUTH SUBSALICYLATE [Concomitant]
     Route: 048
  5. ZANTAC [Concomitant]
     Dosage: 150 MG, QD
     Route: 048

REACTIONS (3)
  - INJURY [None]
  - CHOLELITHIASIS [None]
  - GALLBLADDER DISORDER [None]
